FAERS Safety Report 5384220-8 (Version None)
Quarter: 2007Q3

REPORT INFORMATION
  Report Type: 
  Country: None (occurrence: None)
  Receive Date: 20070711
  Receipt Date: 20070709
  Transmission Date: 20080115
  Serious: Yes (Life-Threatening, Hospitalization)
  Sender: FDA-Public Use
  Company Number: D0053739A

PATIENT
  Age: 71 Year
  Sex: Female
  Weight: 89 kg

DRUGS (3)
  1. HYCAMTIN [Suspect]
     Indication: CERVIX CARCINOMA
     Route: 042
  2. ALLOPURINOL [Concomitant]
     Dosage: 150MG PER DAY
     Route: 048
  3. TORSEMIDE [Concomitant]
     Route: 042

REACTIONS (3)
  - BLOOD CREATINE INCREASED [None]
  - HAEMATOTOXICITY [None]
  - RENAL FAILURE [None]
